FAERS Safety Report 24248379 (Version 1)
Quarter: 2024Q3

REPORT INFORMATION
  Report Type: Spontaneous
  Country: US (occurrence: None)
  Receive Date: 20240823
  Receipt Date: 20240823
  Transmission Date: 20241016
  Serious: No
  Sender: Public
  Company Number: None

PATIENT

DRUGS (2)
  1. GLIMEPIRIDE\METFORMIN [Suspect]
     Active Substance: GLIMEPIRIDE\METFORMIN
  2. GLIMEPIRIDE [Suspect]
     Active Substance: GLIMEPIRIDE

REACTIONS (11)
  - Abdominal pain [None]
  - Dyspepsia [None]
  - Dyspepsia [None]
  - Weight decreased [None]
  - Diarrhoea [None]
  - Hypoglycaemia [None]
  - Decreased appetite [None]
  - Regurgitation [None]
  - Fatigue [None]
  - Overdose [None]
  - Pain [None]
